FAERS Safety Report 5027358-7 (Version None)
Quarter: 2006Q2

REPORT INFORMATION
  Report Type: 
  Country: None (occurrence: None)
  Receive Date: 20060615
  Receipt Date: 20060605
  Transmission Date: 20061013
  Serious: Yes (Hospitalization)
  Sender: FDA-Public Use
  Company Number: US-MERCK-0606USA02189

PATIENT
  Age: 65 Year
  Sex: Male
  Weight: 102 kg

DRUGS (1)
  1. ZOCOR [Suspect]
     Route: 048
     Dates: end: 20050101

REACTIONS (4)
  - ABDOMINAL PAIN [None]
  - PANCREATIC PHLEGMON [None]
  - PANCREATIC PSEUDOCYST [None]
  - PANCREATITIS [None]
